FAERS Safety Report 21102723 (Version 1)
Quarter: 2022Q3

REPORT INFORMATION
  Report Type: Spontaneous
  Country: CN (occurrence: CN)
  Receive Date: 20220720
  Receipt Date: 20220720
  Transmission Date: 20221027
  Serious: Yes (Death, Hospitalization)
  Sender: FDA-Public Use
  Company Number: CN-STRIDES ARCOLAB LIMITED-2022SP009009

PATIENT
  Age: 72 Year
  Sex: Male

DRUGS (1)
  1. DEXAMETHASONE [Suspect]
     Active Substance: DEXAMETHASONE
     Indication: Pneumonia
     Dosage: 5 MILLIGRAM PER DAY, THE PATIENT HAD BEEN TAKING IT FOR LAST 10 YEARS
     Route: 048

REACTIONS (4)
  - Pneumonia bacterial [Fatal]
  - Septic shock [Fatal]
  - Pulmonary tuberculosis [Not Recovered/Not Resolved]
  - Nocardiosis [Unknown]
